FAERS Safety Report 7934729-5 (Version None)
Quarter: 2011Q4

REPORT INFORMATION
  Report Type: 
  Country: None (occurrence: None)
  Receive Date: 20111122
  Receipt Date: 20111117
  Transmission Date: 20120403
  Serious: Yes (Other)
  Sender: FDA-Public Use
  Company Number: DE-JNJFOC-20111107675

PATIENT
  Sex: Female
  Weight: 66 kg

DRUGS (1)
  1. NICOTINE [Suspect]
     Indication: SMOKING CESSATION THERAPY
     Dosage: EIGHT TO TEN PIECES DAILY, FOR MORE THAN THREE YEARS
     Route: 048

REACTIONS (2)
  - INTENTIONAL DRUG MISUSE [None]
  - DRUG DEPENDENCE [None]
